FAERS Safety Report 4679913-1 (Version None)
Quarter: 2005Q2

REPORT INFORMATION
  Report Type: 
  Country: None (occurrence: None)
  Receive Date: 20050531
  Receipt Date: 20050518
  Transmission Date: 20051028
  Serious: Yes (Death, Other)
  Sender: FDA-Public Use
  Company Number: 2005-05-1348

PATIENT
  Sex: Male

DRUGS (6)
  1. SALBUTAMOL SULPHATE 'LIKE PROVENTIL HFA' ORAL AEROSOL [Suspect]
     Dosage: ORAL AER INH
     Route: 048
  2. AMOXICILLIN [Suspect]
     Dosage: INTRAVENOUS
     Route: 042
  3. CLARITHROMYCIN [Suspect]
  4. CO-DANTHRAMER [Suspect]
  5. PARACETAMOL [Concomitant]
  6. ATROVENT [Suspect]
     Dosage: 20 MG ORAL AER INH
     Route: 048

REACTIONS (2)
  - BRONCHIAL CARCINOMA [None]
  - PNEUMONIA [None]
